FAERS Safety Report 15471951 (Version 1)
Quarter: 2018Q4

REPORT INFORMATION
  Report Type: Report from Study
  Country: NL (occurrence: NL)
  Receive Date: 20181008
  Receipt Date: 20181008
  Transmission Date: 20190205
  Serious: No
  Sender: FDA-Public Use
  Company Number: NL-IPSEN BIOPHARMACEUTICALS, INC.-2018-15125

PATIENT
  Age: 60 Year
  Sex: Female

DRUGS (3)
  1. SOMATULINE AUTOSOLUTION 120MG [Suspect]
     Active Substance: LANREOTIDE ACETATE
     Dosage: 1.00 X PER 4 WEEKS
     Route: 058
     Dates: start: 20180830
  2. SOMATULINE AUTOSOLUTION 120MG [Suspect]
     Active Substance: LANREOTIDE ACETATE
     Dosage: 1 X PER 4 WEEKS
     Route: 058
     Dates: start: 20180801
  3. SOMATULINE AUTOSOLUTION 120MG [Suspect]
     Active Substance: LANREOTIDE ACETATE
     Dosage: 1.00 X PER 4 WEEKS
     Route: 058

REACTIONS (1)
  - Functional gastrointestinal disorder [Not Recovered/Not Resolved]

NARRATIVE: CASE EVENT DATE: 20180801
